FAERS Safety Report 6796423-6 (Version None)
Quarter: 2010Q2

REPORT INFORMATION
  Report Type: 
  Country: None (occurrence: None)
  Receive Date: 20100627
  Receipt Date: 20100623
  Transmission Date: 20101027
  Serious: Yes (Other)
  Sender: FDA-Public Use
  Company Number: US-BRISTOL-MYERS SQUIBB COMPANY-15163363

PATIENT
  Age: 86 Year
  Sex: Male
  Weight: 86 kg

DRUGS (16)
  1. WARFARIN SODIUM [Suspect]
     Indication: THROMBOSIS
     Dosage: 1DF=5MG FOR 5DAYS A WEEK AND 7.5 MG FOR 2 DAYS A WEEK
     Dates: end: 20100603
  2. WARFARIN SODIUM [Suspect]
     Indication: PROPHYLAXIS
     Dosage: 1DF=5MG FOR 5DAYS A WEEK AND 7.5 MG FOR 2 DAYS A WEEK
     Dates: end: 20100603
  3. TOVIAZ [Suspect]
     Indication: HYPERTONIC BLADDER
     Dosage: MODIFIED RELEASE TABS
     Route: 048
     Dates: start: 20100501, end: 20100603
  4. ALLOPURINOL [Concomitant]
     Indication: GOUT
  5. ARICEPT [Concomitant]
     Indication: MEMORY IMPAIRMENT
  6. AMLODIPINE [Concomitant]
     Indication: HYPERTENSION
  7. BENICAR [Concomitant]
     Indication: HYPERTENSION
  8. METOPROLOL [Concomitant]
     Indication: HYPERTENSION
  9. LISINOPRIL [Concomitant]
     Indication: HYPERTENSION
  10. CRESTOR [Concomitant]
     Indication: CARDIAC DISORDER
  11. FINASTERIDE [Concomitant]
     Indication: PROSTATIC DISORDER
  12. TAMSULOSIN HCL [Concomitant]
     Indication: PROSTATIC DISORDER
  13. LASIX [Concomitant]
     Indication: FLUID RETENTION
  14. HYDROCHLOROTHIAZIDE [Concomitant]
  15. NITROGLYCERIN [Concomitant]
  16. TYLENOL [Concomitant]

REACTIONS (3)
  - HAEMORRHAGE URINARY TRACT [None]
  - URINARY BLADDER HAEMORRHAGE [None]
  - URINARY RETENTION [None]
